FAERS Safety Report 4562339-9 (Version None)
Quarter: 2005Q1

REPORT INFORMATION
  Report Type: 
  Country: None (occurrence: None)
  Receive Date: 20050127
  Receipt Date: 20041011
  Transmission Date: 20050727
  Serious: No
  Sender: FDA-Public Use
  Company Number: US-BRISTOL-MYERS SQUIBB COMPANY-12728515

PATIENT
  Age: 71 Year
  Sex: Female

DRUGS (1)
  1. METAGLIP [Suspect]
     Indication: DIABETES MELLITUS
     Dosage: JUL-2003 - 2.5/250 MG BID APR-2004 - 2.5/250 MG DAILY OCT-2004 - 2.5/500 MG DAILY
     Route: 048
     Dates: start: 20030701

REACTIONS (1)
  - DRUG INEFFECTIVE [None]
